FAERS Safety Report 10152786 (Version 1)
Quarter: 2014Q2

REPORT INFORMATION
  Report Type: Spontaneous
  Country: MY (occurrence: MY)
  Receive Date: 20140505
  Receipt Date: 20140505
  Transmission Date: 20141212
  Serious: Yes (Other)
  Sender: FDA-Public Use
  Company Number: MY-PFIZER INC-2014121826

PATIENT
  Sex: 0

DRUGS (1)
  1. CELEBREX [Suspect]

REACTIONS (2)
  - Renal tubular necrosis [Unknown]
  - Hypokalaemia [Unknown]
